FAERS Safety Report 5029938-1 (Version None)
Quarter: 2006Q2

REPORT INFORMATION
  Report Type: 
  Country: None (occurrence: None)
  Receive Date: 20060620
  Receipt Date: 20060614
  Transmission Date: 20061013
  Serious: Yes (Death)
  Sender: FDA-Public Use
  Company Number: GB-GLAXOSMITHKLINE-B0427929A

PATIENT
  Sex: Male

DRUGS (12)
  1. SALBUTAMOL [Suspect]
     Route: 065
  2. SERETIDE [Suspect]
     Route: 065
  3. CITALOPRAM [Suspect]
     Route: 065
  4. LOSARTAN [Suspect]
     Route: 065
  5. MOMETASONE FUROATE [Suspect]
     Route: 065
  6. NYSTATIN [Suspect]
     Route: 065
  7. OXYGEN [Suspect]
     Route: 065
  8. PHOLCODINE TAB [Suspect]
     Route: 065
  9. COMBIVENT [Suspect]
     Route: 055
  10. SPIRIVA [Suspect]
  11. XALATAN [Suspect]
     Route: 065
  12. ZOPICLONE [Suspect]
     Route: 065

REACTIONS (1)
  - CHRONIC OBSTRUCTIVE PULMONARY DISEASE [None]
